FAERS Safety Report 14002385 (Version 1)
Quarter: 2017Q3

REPORT INFORMATION
  Report Type: Spontaneous
  Country: IT (occurrence: IT)
  Receive Date: 20170922
  Receipt Date: 20170922
  Transmission Date: 20171128
  Serious: Yes (Other)
  Sender: FDA-Public Use
  Company Number: IT-ABBVIE-17P-083-2109681-00

PATIENT
  Sex: Male

DRUGS (12)
  1. DEPAKIN CHRONO [Suspect]
     Active Substance: VALPROIC ACID
     Dosage: EXTENDED RELEASE
     Route: 048
     Dates: start: 20170620, end: 20170901
  2. JURNISTA [Suspect]
     Active Substance: HYDROMORPHONE HYDROCHLORIDE
     Indication: PHANTOM PAIN
  3. GRIFOXINA [Suspect]
     Active Substance: LEVETIRACETAM
     Indication: EPILEPSY
     Dosage: TABLET, FILM COATED
     Route: 048
     Dates: start: 20170620, end: 20170901
  4. DEPAKIN CHRONO [Suspect]
     Active Substance: VALPROIC ACID
     Indication: POST-TRAUMATIC EPILEPSY
     Dosage: EXTENDED RELEASE
     Route: 048
     Dates: start: 20160301, end: 20170519
  5. LYRICA [Suspect]
     Active Substance: PREGABALIN
     Indication: NEURALGIA
  6. LYRICA [Suspect]
     Active Substance: PREGABALIN
     Indication: PHANTOM PAIN
     Route: 048
     Dates: start: 20120430
  7. JURNISTA [Suspect]
     Active Substance: HYDROMORPHONE HYDROCHLORIDE
     Indication: FRACTURE PAIN
     Dosage: EXTENDED RELEASE
     Route: 048
     Dates: start: 20170902, end: 20170902
  8. OKI [Concomitant]
     Active Substance: KETOPROFEN LYSINE
     Indication: PRODUCT USED FOR UNKNOWN INDICATION
  9. JURNISTA [Suspect]
     Active Substance: HYDROMORPHONE HYDROCHLORIDE
     Indication: INTENTIONAL OVERDOSE
     Dosage: EXTENDED RELEASE
     Route: 048
     Dates: start: 20170902, end: 20170902
  10. HYDROMORPHONE HYDROCHLORIDE. [Concomitant]
     Active Substance: HYDROMORPHONE HYDROCHLORIDE
     Indication: PRODUCT USED FOR UNKNOWN INDICATION
     Dates: start: 20160101
  11. PANTOPRAZOLE [Concomitant]
     Active Substance: PANTOPRAZOLE
     Indication: PRODUCT USED FOR UNKNOWN INDICATION
  12. LYRICA [Suspect]
     Active Substance: PREGABALIN
     Indication: INTENTIONAL OVERDOSE
     Route: 048
     Dates: start: 20170902, end: 20170902

REACTIONS (3)
  - Sopor [Recovered/Resolved]
  - Intentional overdose [Unknown]
  - Intentional self-injury [Recovered/Resolved]

NARRATIVE: CASE EVENT DATE: 20170902
